FAERS Safety Report 14946652 (Version 1)
Quarter: 2018Q2

REPORT INFORMATION
  Report Type: Report from Study
  Country: US (occurrence: US)
  Receive Date: 20180529
  Receipt Date: 20180529
  Transmission Date: 20180711
  Serious: Yes (Hospitalization)
  Sender: FDA-Public Use
  Company Number: US-JNJFOC-20160419289

PATIENT
  Sex: Male

DRUGS (4)
  1. MELOXICAM. [Concomitant]
     Active Substance: MELOXICAM
     Indication: INFLAMMATION
  2. ATORVASTATIN [Concomitant]
     Active Substance: ATORVASTATIN
     Indication: CARDIAC DISORDER
  3. IMBRUVICA [Suspect]
     Active Substance: IBRUTINIB
     Indication: CHRONIC LYMPHOCYTIC LEUKAEMIA
     Route: 048
     Dates: start: 20150406
  4. IMBRUVICA [Suspect]
     Active Substance: IBRUTINIB
     Indication: CHRONIC LYMPHOCYTIC LEUKAEMIA
     Route: 048

REACTIONS (14)
  - Anxiety [Not Recovered/Not Resolved]
  - Rash [Recovered/Resolved]
  - Asthenia [Recovering/Resolving]
  - Nasopharyngitis [Unknown]
  - Platelet count decreased [Recovering/Resolving]
  - Blood bilirubin abnormal [Not Recovered/Not Resolved]
  - White blood cell count abnormal [Recovered/Resolved]
  - Decreased activity [Not Recovered/Not Resolved]
  - Insomnia [Not Recovered/Not Resolved]
  - Localised infection [Not Recovered/Not Resolved]
  - Skin ulcer [Unknown]
  - Influenza [Recovered/Resolved]
  - Skin exfoliation [Not Recovered/Not Resolved]
  - Vein disorder [Unknown]

NARRATIVE: CASE EVENT DATE: 2015
